FAERS Safety Report 7116701-0 (Version None)
Quarter: 2010Q4

REPORT INFORMATION
  Report Type: 
  Country: None (occurrence: None)
  Receive Date: 20101122
  Receipt Date: 20101115
  Transmission Date: 20110411
  Serious: Yes (Hospitalization)
  Sender: FDA-Public Use
  Company Number: D0068901A

PATIENT
  Age: 68 Year
  Sex: Female
  Weight: 55 kg

DRUGS (10)
  1. CEFUROXIME [Suspect]
     Dosage: 500MG TWICE PER DAY
     Route: 048
     Dates: start: 20100820
  2. CLINDAMYCIN [Suspect]
     Dosage: 600MG THREE TIMES PER DAY
     Route: 048
     Dates: start: 20100820
  3. CEFUROXIME SODIUM [Concomitant]
     Route: 042
     Dates: start: 20100812, end: 20100819
  4. CLINDAMYCIN [Concomitant]
     Route: 042
     Dates: start: 20100815, end: 20100819
  5. IBUPROFEN TABLETS [Concomitant]
     Indication: PAIN
     Dosage: 400MG THREE TIMES PER DAY
     Route: 048
     Dates: start: 20100810, end: 20100826
  6. TRAMADOL HCL [Concomitant]
     Indication: PAIN
     Dosage: 150MG TWICE PER DAY
     Route: 048
     Dates: start: 20100810
  7. ZOPICLONE [Concomitant]
     Indication: SLEEP DISORDER
     Dosage: 7.5MG PER DAY
     Route: 048
     Dates: start: 20100812
  8. QUILONUM RETARD [Concomitant]
     Indication: BIPOLAR DISORDER
     Dosage: 450MG PER DAY
     Route: 048
     Dates: start: 20080101, end: 20100826
  9. PANTOPRAZOLE SODIUM [Concomitant]
     Dosage: 40MG PER DAY
     Route: 048
     Dates: start: 20100812
  10. TRIAMTEREN COMP [Concomitant]
     Dosage: 37.5MG PER DAY
     Route: 048
     Dates: start: 20080101

REACTIONS (6)
  - ABDOMINAL PAIN [None]
  - DEHYDRATION [None]
  - DIARRHOEA [None]
  - FREQUENT BOWEL MOVEMENTS [None]
  - GASTROENTERITIS CLOSTRIDIAL [None]
  - VOMITING [None]
